FAERS Safety Report 20085879 (Version 2)
Quarter: 2021Q4

REPORT INFORMATION
  Report Type: Spontaneous
  Country: CN (occurrence: CN)
  Receive Date: 20211118
  Receipt Date: 20211202
  Transmission Date: 20220303
  Serious: Yes (Life-Threatening, Hospitalization, Other)
  Sender: FDA-Public Use
  Company Number: ALC2021CN006256

PATIENT
  Age: 48 Year
  Sex: Male
  Weight: 59 kg

DRUGS (4)
  1. FLUORESCITE [Suspect]
     Active Substance: FLUORESCEIN SODIUM
     Indication: Angiogram
     Dosage: 0.010 ML, QD
     Route: 042
     Dates: start: 20211027, end: 20211027
  2. DEXAMETHASONE SODIUM PHOSPHATE [Concomitant]
     Active Substance: DEXAMETHASONE SODIUM PHOSPHATE
     Indication: Hypersensitivity
     Dosage: 5.000 MG, QD
     Route: 042
     Dates: start: 20211027, end: 20211027
  3. DESLORATADINE [Concomitant]
     Active Substance: DESLORATADINE
     Indication: Hypersensitivity
     Dosage: 8.800 MG, QD
     Route: 048
     Dates: start: 20211027, end: 20211027
  4. SODIUM CHLORIDE (Kelidai) [Concomitant]
     Indication: Drug therapy enhancement
     Dosage: 10.000 ML, QD
     Route: 061
     Dates: start: 20211027, end: 20211027

REACTIONS (8)
  - Rash [Recovering/Resolving]
  - Nausea [Recovering/Resolving]
  - Dizziness [Recovering/Resolving]
  - Altered state of consciousness [Recovering/Resolving]
  - Seizure [Recovering/Resolving]
  - Cold sweat [Recovering/Resolving]
  - Hypotension [Recovering/Resolving]
  - Pruritus [Recovering/Resolving]

NARRATIVE: CASE EVENT DATE: 20211027
